FAERS Safety Report 11945324 (Version 2)
Quarter: 2016Q1

REPORT INFORMATION
  Report Type: Spontaneous
  Country: FR (occurrence: FR)
  Receive Date: 20160125
  Receipt Date: 20160126
  Transmission Date: 20160526
  Serious: Yes (Death, Life-Threatening, Hospitalization, Other)
  Sender: FDA-Public Use
  Company Number: FR-PFIZER INC-2016007011

PATIENT
  Age: 86 Year
  Sex: Male

DRUGS (6)
  1. ELIQUIS [Suspect]
     Active Substance: APIXABAN
     Dosage: 2.5 MG, 2X/DAY
     Route: 048
     Dates: start: 201510, end: 20151212
  2. VALSARTAN. [Concomitant]
     Active Substance: VALSARTAN
     Dosage: 160 MG, UNK
     Route: 065
  3. CORDARONE [Suspect]
     Active Substance: AMIODARONE HYDROCHLORIDE
     Indication: ATRIAL FLUTTER
     Dosage: 200 MG, DAILY
     Route: 048
     Dates: start: 201510, end: 20151210
  4. BISOPROLOL FUMARATE. [Suspect]
     Active Substance: BISOPROLOL FUMARATE
     Dosage: 2.5 MG, DAILY
     Route: 048
     Dates: start: 201510
  5. HYDROCHLOROTHIAZIDE. [Concomitant]
     Active Substance: HYDROCHLOROTHIAZIDE
     Dosage: 25 MG, UNK
     Route: 065
  6. FUROSEMIDE. [Concomitant]
     Active Substance: FUROSEMIDE
     Dosage: 40 MG, UNK
     Route: 065

REACTIONS (9)
  - Tachycardia [Unknown]
  - Pulmonary fibrosis [Fatal]
  - Cardiac arrest [Unknown]
  - Pulmonary alveolar haemorrhage [Unknown]
  - Dyspnoea [Fatal]
  - Acute kidney injury [Recovering/Resolving]
  - Cardiac failure [Unknown]
  - Hypotension [Unknown]
  - Infection [Unknown]

NARRATIVE: CASE EVENT DATE: 20151129
